FAERS Safety Report 24991760 (Version 1)
Quarter: 2025Q1

REPORT INFORMATION
  Report Type: Spontaneous
  Country: US (occurrence: None)
  Receive Date: 20250220
  Receipt Date: 20250220
  Transmission Date: 20250409
  Serious: Yes (Life-Threatening, Hospitalization, Other)
  Sender: FDA-CTU
  Company Number: None

PATIENT
  Age: 17 Year
  Sex: Male
  Weight: 75.1 kg

DRUGS (3)
  1. PRAZOSIN [Suspect]
     Active Substance: PRAZOSIN
     Indication: Post-traumatic stress disorder
     Dosage: FREQUENCY : AT BEDTIME;?
     Route: 048
  2. CHOLECALCIFEROL [Concomitant]
     Active Substance: CHOLECALCIFEROL
  3. MIRTAZAPINE [Concomitant]
     Active Substance: MIRTAZAPINE

REACTIONS (14)
  - Pyrexia [None]
  - Malaise [None]
  - Tachycardia [None]
  - Oropharyngeal pain [None]
  - Therapy change [None]
  - Lethargy [None]
  - Hyperhidrosis [None]
  - Headache [None]
  - Fall [None]
  - Loss of consciousness [None]
  - Syncope [None]
  - Pneumonia [None]
  - Syncope [None]
  - Asthenia [None]

NARRATIVE: CASE EVENT DATE: 20250205
